FAERS Safety Report 7135334-3 (Version None)
Quarter: 2010Q4

REPORT INFORMATION
  Report Type: 
  Country: None (occurrence: None)
  Receive Date: 20101203
  Receipt Date: 20101126
  Transmission Date: 20110411
  Serious: Yes (Hospitalization)
  Sender: FDA-Public Use
  Company Number: KR-BAXTER-2010BH028695

PATIENT
  Age: 59 Year
  Sex: Female

DRUGS (3)
  1. EXTRANEAL [Suspect]
     Indication: PERITONEAL DIALYSIS
     Route: 033
     Dates: start: 20010626, end: 20101107
  2. EXTRANEAL [Suspect]
     Route: 033
     Dates: start: 20101111, end: 20101113
  3. VANCOMYCIN [Concomitant]
     Indication: PERITONITIS
     Route: 033
     Dates: start: 20101016

REACTIONS (2)
  - CHEMICAL PERITONITIS [None]
  - PERITONITIS [None]
